FAERS Safety Report 6483953-X (Version None)
Quarter: 2009Q4

REPORT INFORMATION
  Report Type: 
  Country: None (occurrence: None)
  Receive Date: 20091209
  Receipt Date: 20090827
  Transmission Date: 20100525
  Serious: No
  Sender: FDA-Public Use
  Company Number: US-AMGEN-KDL347451

PATIENT
  Sex: Male

DRUGS (2)
  1. ENBREL [Suspect]
     Indication: PSORIASIS
     Route: 058
     Dates: start: 20041101
  2. CLOBETASOL PROPIONATE [Concomitant]
     Dates: start: 20090501

REACTIONS (4)
  - CONTUSION [None]
  - ONYCHOCLASIS [None]
  - PSORIASIS [None]
  - SKIN LACERATION [None]
